FAERS Safety Report 4981732-3 (Version None)
Quarter: 2006Q2

REPORT INFORMATION
  Report Type: 
  Country: None (occurrence: None)
  Receive Date: 20060420
  Receipt Date: 20060420
  Transmission Date: 20061013
  Serious: Yes (Hospitalization)
  Sender: FDA-Public Use
  Company Number: None

PATIENT
  Age: 78 Year
  Sex: Male
  Weight: 62.6 kg

DRUGS (12)
  1. COUMADIN [Suspect]
     Indication: PULMONARY EMBOLISM
     Dosage: 2 MG  DAILY    CHRONIC
  2. ALAMAG [Concomitant]
  3. PREVACID [Concomitant]
  4. NPH-16 UNITS/ SSI-REGULAR [Concomitant]
  5. BISACODYL [Concomitant]
  6. EPOGEN [Concomitant]
  7. MOM [Concomitant]
  8. VANCO [Concomitant]
  9. VIT C [Concomitant]
  10. PRIMAXIN [Concomitant]
  11. IRON [Concomitant]
  12. FLAGYL [Concomitant]

REACTIONS (8)
  - CLOSTRIDIAL INFECTION [None]
  - CONDITION AGGRAVATED [None]
  - CONFUSIONAL STATE [None]
  - HAEMOGLOBIN DECREASED [None]
  - HYPOTENSION [None]
  - MOUTH HAEMORRHAGE [None]
  - SOMNOLENCE [None]
  - TACHYCARDIA [None]
